FAERS Safety Report 8869334 (Version 1)
Quarter: 2012Q4

REPORT INFORMATION
  Report Type: Spontaneous
  Country: IN (occurrence: None)
  Receive Date: 20121022
  Receipt Date: 20121022
  Transmission Date: 20130627
  Serious: Yes (Hospitalization)
  Sender: FDA-Public Use
  Company Number: 2012SUN00145

PATIENT
  Age: 58 Year
  Sex: Female

DRUGS (3)
  1. HYDROCHLOROTHIAZIDE [Suspect]
     Indication: HYPERTENSION
     Dosage: 12.5 mg, UNK, Oral
     Route: 048
  2. LITHIUM [Suspect]
     Indication: BIPOLAR AFFECTIVE DISORDER
     Dosage: 600 mg, qd, Oral
     Route: 048
  3. ACECLOFENAC [Suspect]
     Indication: OSTEOARTHRITIS
     Dosage: 100 mg, UNK

REACTIONS (9)
  - Drug interaction [None]
  - Toxicity to various agents [None]
  - Arthralgia [None]
  - Blood pressure increased [None]
  - Somnolence [None]
  - Dysarthria [None]
  - Ataxia [None]
  - Tremor [None]
  - Insomnia [None]
